FAERS Safety Report 24042654 (Version 1)
Quarter: 2024Q3

REPORT INFORMATION
  Report Type: Spontaneous
  Country: US (occurrence: US)
  Receive Date: 20240702
  Receipt Date: 20240702
  Transmission Date: 20241017
  Serious: No
  Sender: INTRA-CELLULAR THERAPIES
  Company Number: US-INTRA-CELLULAR THERAPIES, INC.-2024ICT00861

PATIENT
  Age: 21 Year
  Sex: Female
  Weight: 78.458 kg

DRUGS (6)
  1. CAPLYTA [Suspect]
     Active Substance: LUMATEPERONE
     Indication: Bipolar disorder
     Dosage: UNK
     Dates: start: 20240104, end: 2024
  2. LEXAPRO [Concomitant]
     Active Substance: ESCITALOPRAM OXALATE
  3. TERAZOSIN [Concomitant]
     Active Substance: TERAZOSIN HYDROCHLORIDE
  4. BUSPAR [Concomitant]
     Active Substance: BUSPIRONE HYDROCHLORIDE
  5. TOPAMAX [Concomitant]
     Active Substance: TOPIRAMATE
  6. NALTREXONE [Concomitant]
     Active Substance: NALTREXONE

REACTIONS (5)
  - Asthenia [Unknown]
  - Blood pressure decreased [Unknown]
  - Weight decreased [Not Recovered/Not Resolved]
  - Dizziness [Unknown]
  - Fatigue [Unknown]

NARRATIVE: CASE EVENT DATE: 20240101
